FAERS Safety Report 24217497 (Version 1)
Quarter: 2024Q3

REPORT INFORMATION
  Report Type: Other
  Country: SE (occurrence: SE)
  Receive Date: 20240816
  Receipt Date: 20240816
  Transmission Date: 20241017
  Serious: Yes (Other)
  Sender: GLENMARK
  Company Number: None

PATIENT

DRUGS (11)
  1. ATOMOXETINE [Suspect]
     Active Substance: ATOMOXETINE HYDROCHLORIDE
     Indication: Product used for unknown indication
     Dosage: UNK
     Route: 065
     Dates: start: 20240522, end: 20240704
  2. PARAFLEX [Concomitant]
     Active Substance: CHLORZOXAZONE
     Indication: Product used for unknown indication
     Dosage: 250 MILLIGRAM, PRN, 1 TABLETT VID BEHOV, H?GST 4 TABLETTER PER DYGN ((AS NECESSARY)
     Route: 065
     Dates: start: 20230621
  3. BACLOFEN [Concomitant]
     Active Substance: BACLOFEN
     Indication: Product used for unknown indication
     Dosage: 10 MILLIGRAM, OD
     Route: 065
     Dates: start: 20231204
  4. ESOMEPRAZOLE [Concomitant]
     Active Substance: ESOMEPRAZOLE
     Indication: Product used for unknown indication
     Dosage: 40 MILLIGRAM, OD
     Route: 065
     Dates: start: 20220315
  5. ARITONIN [Concomitant]
     Indication: Product used for unknown indication
     Dosage: UNK, 1-2 TABLETTER KL 21
     Route: 065
     Dates: start: 20230202
  6. PROMETHAZINE HYDROCHLORIDE\THIOUREA [Concomitant]
     Active Substance: PROMETHAZINE HYDROCHLORIDE\THIOUREA
     Indication: Product used for unknown indication
     Dosage: UNK, PRN, 2-4 TABLETTER VID BEHOV, H?GST 10 TABLETTER PER DYGN
     Route: 065
     Dates: start: 20220701
  7. DROSPIRENONE [Concomitant]
     Active Substance: DROSPIRENONE
     Indication: Product used for unknown indication
     Dosage: 4 MILLIGRAM, OD
     Route: 065
     Dates: start: 20231114
  8. DROSPIRENONE [Concomitant]
     Active Substance: DROSPIRENONE
     Dosage: 8 MILLIGRAM, OD
     Route: 065
     Dates: start: 20240411
  9. BLISSEL [Concomitant]
     Indication: Product used for unknown indication
     Dosage: 1 DOSAGE FORM, BID
     Route: 065
     Dates: start: 20231113
  10. DIENOGEST\ETHINYL ESTRADIOL [Concomitant]
     Active Substance: DIENOGEST\ETHINYL ESTRADIOL
     Indication: Product used for unknown indication
     Dosage: UNK, ENBART VITA TABLETTER. VID BL?DNING TA 4 DAGAR PAUS.
     Route: 065
     Dates: start: 20240314
  11. PRIMPERAN [Concomitant]
     Active Substance: METOCLOPRAMIDE HYDROCHLORIDE
     Indication: Product used for unknown indication
     Dosage: 10 MILLIGRAM, PRN
     Route: 065

REACTIONS (7)
  - Executive dysfunction [Unknown]
  - Emotional poverty [Unknown]
  - Hypotension [Unknown]
  - Aggression [Unknown]
  - Fatigue [Unknown]
  - Heart rate increased [Unknown]
  - Anxiety [Unknown]

NARRATIVE: CASE EVENT DATE: 20240101
